FAERS Safety Report 16305253 (Version 1)
Quarter: 2019Q2

REPORT INFORMATION
  Report Type: Report from Study
  Country: JP (occurrence: JP)
  Receive Date: 20190513
  Receipt Date: 20190513
  Transmission Date: 20190711
  Serious: Yes (Other)
  Sender: FDA-Public Use
  Company Number: JP-ASTRAZENECA-2019SE71876

PATIENT
  Age: 84 Year
  Sex: Male

DRUGS (12)
  1. SAXAGLIPTIN [Suspect]
     Active Substance: SAXAGLIPTIN
     Indication: TYPE 2 DIABETES MELLITUS
     Route: 048
     Dates: start: 20150525, end: 20180521
  2. EPADEL-S [Concomitant]
     Active Substance: ICOSAPENT ETHYL
  3. SEIBULE [Concomitant]
     Active Substance: MIGLITOL
     Dates: end: 20171204
  4. BROTIZOLAM [Concomitant]
     Active Substance: BROTIZOLAM
     Dates: end: 20171204
  5. SENNOSIDE [Concomitant]
     Active Substance: SENNOSIDES
     Route: 048
     Dates: end: 20171204
  6. MAGLAX [Concomitant]
     Active Substance: MAGNESIUM OXIDE
     Route: 048
  7. EPL [Concomitant]
     Active Substance: LECITHIN
  8. MEVALOTIN [Concomitant]
     Active Substance: PRAVASTATIN SODIUM
     Route: 048
  9. WARFARIN [Concomitant]
     Active Substance: WARFARIN
     Route: 048
  10. ZETIA [Concomitant]
     Active Substance: EZETIMIBE
  11. SPIRIVA [Concomitant]
     Active Substance: TIOTROPIUM BROMIDE MONOHYDRATE
     Route: 055
     Dates: end: 20171204
  12. ULTIBRO BREEZHALER [Concomitant]
     Active Substance: GLYCOPYRRONIUM\INDACATEROL
     Route: 055

REACTIONS (2)
  - Cardiac failure chronic [Recovering/Resolving]
  - Seizure [Recovered/Resolved]

NARRATIVE: CASE EVENT DATE: 20170612
